FAERS Safety Report 10348046 (Version 1)
Quarter: 2014Q3

REPORT INFORMATION
  Report Type: Spontaneous
  Country: US (occurrence: US)
  Receive Date: 20140729
  Receipt Date: 20140729
  Transmission Date: 20150326
  Serious: Yes (Other)
  Sender: FDA-Public Use
  Company Number: US-ACTAVIS-2014-16289

PATIENT
  Age: 27 Year
  Sex: Female

DRUGS (5)
  1. METHOTREXATE (METHOTREXATE SODIUM) [Suspect]
     Active Substance: METHOTREXATE SODIUM
     Indication: BENIGN HYDATIDIFORM MOLE
     Dosage: ONE CYCLE
     Route: 065
  2. CYCLOPHOSPHAMIDE (UNKNOWN) [Suspect]
     Active Substance: CYCLOPHOSPHAMIDE
     Indication: BENIGN HYDATIDIFORM MOLE
     Dosage: 9 BI-WEEKLY CYCLES
     Route: 065
  3. ETOPOSIDE (WATSON LABORATORIES) [Suspect]
     Active Substance: ETOPOSIDE
     Indication: BENIGN HYDATIDIFORM MOLE
     Dosage: 9 BI-WEEKLY CYCLES
     Route: 065
  4. DACTINOMYCIN [Suspect]
     Active Substance: DACTINOMYCIN
     Indication: BENIGN HYDATIDIFORM MOLE
     Dosage: 9 BI-WEEKLY CYCLES
     Route: 065
  5. VINCRISTINE (UNKNOWN) [Suspect]
     Active Substance: VINCRISTINE
     Indication: BENIGN HYDATIDIFORM MOLE
     Dosage: 9 BI-WEEKLY CYCLES
     Route: 065

REACTIONS (1)
  - Acute myeloid leukaemia [Unknown]
